FAERS Safety Report 19381489 (Version 1)
Quarter: 2021Q2

REPORT INFORMATION
  Report Type: Spontaneous
  Country: US (occurrence: US)
  Receive Date: 20210604
  Receipt Date: 20210604
  Transmission Date: 20210717
  Serious: No
  Sender: FDA-Public Use
  Company Number: None

PATIENT
  Age: 42 Year
  Sex: Female
  Weight: 81.9 kg

DRUGS (1)
  1. EXTRA STRENGTH HEADACHE RELIEF [Suspect]
     Active Substance: ACETAMINOPHEN\ASPIRIN\CAFFEINE
     Indication: HEADACHE
     Dosage: ?          OTHER STRENGTH:NOT ON THE BOTTLE;QUANTITY:1 TABLET(S);OTHER FREQUENCY:NO MORE THE 8 A DA;?
     Route: 048

REACTIONS (1)
  - Product label issue [None]

NARRATIVE: CASE EVENT DATE: 20210604
